FAERS Safety Report 8457512-3 (Version None)
Quarter: 2012Q2

REPORT INFORMATION
  Report Type: 
  Country: None (occurrence: None)
  Receive Date: 20120622
  Receipt Date: 20120613
  Transmission Date: 20120825
  Serious: Yes (Hospitalization)
  Sender: FDA-Public Use
  Company Number: US-BIOGENIDEC-2010BI035213

PATIENT
  Age: 53 Year
  Sex: Female

DRUGS (1)
  1. TYSABRI [Suspect]
     Indication: MULTIPLE SCLEROSIS
     Route: 042
     Dates: start: 20091211

REACTIONS (4)
  - MULTIPLE SCLEROSIS RELAPSE [None]
  - BLOOD POTASSIUM DECREASED [None]
  - MUSCULOSKELETAL STIFFNESS [None]
  - NASOPHARYNGITIS [None]
